FAERS Safety Report 8994753 (Version 1)
Quarter: 2012Q4

REPORT INFORMATION
  Report Type: Spontaneous
  Country: US (occurrence: None)
  Receive Date: 20121228
  Receipt Date: 20121228
  Transmission Date: 20130627
  Serious: Yes (Disabling)
  Sender: FDA-Public Use
  Company Number: None

PATIENT
  Age: 49 Year
  Sex: Female
  Weight: 103.87 kg

DRUGS (2)
  1. CYMBALTA 60MG LILLY [Suspect]
     Indication: DEPRESSION
     Route: 048
     Dates: start: 20060304, end: 20121220
  2. CYMBALTA 60MG LILLY [Suspect]
     Indication: PAIN
     Route: 048
     Dates: start: 20060304, end: 20121220

REACTIONS (1)
  - Drug withdrawal syndrome [None]
